FAERS Safety Report 9225856 (Version 10)
Quarter: 2016Q2

REPORT INFORMATION
  Report Type: Spontaneous
  Country: US (occurrence: US)
  Receive Date: 20130411
  Receipt Date: 20160401
  Transmission Date: 20160815
  Serious: No
  Sender: FDA-Public Use
  Company Number: US-009507513-1304USA002754

PATIENT
  Sex: Male
  Weight: 83.45 kg

DRUGS (1)
  1. PROPECIA [Suspect]
     Active Substance: FINASTERIDE
     Indication: ANDROGENETIC ALOPECIA
     Dosage: 1 MG, QD
     Route: 048
     Dates: start: 20031216, end: 201203

REACTIONS (19)
  - Hypogonadism [Not Recovered/Not Resolved]
  - Erectile dysfunction [Not Recovered/Not Resolved]
  - Emotional disorder [Unknown]
  - Anxiety [Unknown]
  - Marital problem [Unknown]
  - Testicular disorder [Unknown]
  - Sexual dysfunction [Not Recovered/Not Resolved]
  - Depression [Not Recovered/Not Resolved]
  - Loss of libido [Not Recovered/Not Resolved]
  - Blood testosterone decreased [Not Recovered/Not Resolved]
  - Sleep disorder [Unknown]
  - Fatigue [Unknown]
  - Attention deficit/hyperactivity disorder [Unknown]
  - Anxiety [Not Recovered/Not Resolved]
  - Hypothyroidism [Unknown]
  - Mental disorder [Unknown]
  - Skin lesion [Unknown]
  - Acne [Unknown]
  - Ejaculation disorder [Not Recovered/Not Resolved]

NARRATIVE: CASE EVENT DATE: 2004
